FAERS Safety Report 6025915-2 (Version None)
Quarter: 2009Q1

REPORT INFORMATION
  Report Type: 
  Country: None (occurrence: None)
  Receive Date: 20090102
  Receipt Date: 20081222
  Transmission Date: 20090719
  Serious: Yes (Hospitalization)
  Sender: FDA-Public Use
  Company Number: JP-ROCHE-604599

PATIENT
  Age: 46 Year
  Sex: Female

DRUGS (7)
  1. CAPECITABINE [Suspect]
     Route: 065
     Dates: start: 20060201
  2. TRASTUZUMAB [Suspect]
     Route: 065
     Dates: start: 20040201, end: 20060501
  3. TRASTUZUMAB [Suspect]
     Dosage: WEEKLY TRASTUZUMAB ON DAY 1, 8, 15, AND 21.
     Route: 065
     Dates: start: 20060501, end: 20060601
  4. TRASTUZUMAB [Suspect]
     Dosage: TRASTUZUMAB WAS REDUCED TO 75 MG/M2 WEEK, AFTER THE FIRST COURSE FOR ECONOMIC REASONS.
     Route: 065
     Dates: start: 20060601
  5. VINORELBINE [Suspect]
     Route: 065
     Dates: start: 20060201
  6. CYCLOPHOSPHAMIDE [Suspect]
     Route: 065
     Dates: start: 20040201
  7. S-1 REGIMEN [Suspect]
     Route: 065
     Dates: start: 20040201

REACTIONS (4)
  - ANAEMIA [None]
  - BREAST CANCER METASTATIC [None]
  - PAIN [None]
  - SKIN ULCER HAEMORRHAGE [None]
